FAERS Safety Report 26138779 (Version 1)
Quarter: 2025Q4

REPORT INFORMATION
  Report Type: Spontaneous
  Country: CN (occurrence: CN)
  Receive Date: 20251210
  Receipt Date: 20251210
  Transmission Date: 20260118
  Serious: Yes (Other)
  Sender: RANBAXY
  Company Number: CN-SUN PHARMACEUTICAL INDUSTRIES LTD-2025R1-533425

PATIENT
  Age: 61 Year
  Sex: Male

DRUGS (7)
  1. OXALIPLATIN [Suspect]
     Active Substance: OXALIPLATIN
     Indication: Chemotherapy
     Dosage: UNK
     Route: 065
     Dates: start: 20230813
  2. EPIRUBICIN [Suspect]
     Active Substance: EPIRUBICIN
     Indication: Therapeutic embolisation
     Dosage: UNK
     Route: 065
  3. LENVATINIB [Suspect]
     Active Substance: LENVATINIB
     Indication: Therapeutic embolisation
     Dosage: 12 MILLIGRAM, QD; 4 CYCLES
     Route: 065
  4. LEUCOVORIN CALCIUM [Suspect]
     Active Substance: LEUCOVORIN CALCIUM
     Indication: Chemotherapy
     Dosage: UNK
     Route: 065
     Dates: start: 202308
  5. LIPIODOL [Suspect]
     Active Substance: ETHIODIZED OIL
     Indication: Therapeutic embolisation
     Dosage: UNK
     Route: 065
  6. SINTILIMAB [Suspect]
     Active Substance: SINTILIMAB
     Indication: Therapeutic embolisation
     Dosage: 200 MILLIGRAM EVERY 21 DAYS; 4 CYCLES
     Route: 042
     Dates: start: 20231230, end: 20240319
  7. FLUOROURACIL [Suspect]
     Active Substance: FLUOROURACIL
     Indication: Chemotherapy
     Dosage: UNK
     Route: 065
     Dates: start: 20230813

REACTIONS (4)
  - Hypothyroidism [Unknown]
  - Nausea [Unknown]
  - Vomiting [Unknown]
  - Abdominal pain [Unknown]
